FAERS Safety Report 23331649 (Version 1)
Quarter: 2023Q4

REPORT INFORMATION
  Report Type: Spontaneous
  Country: US (occurrence: None)
  Receive Date: 20231222
  Receipt Date: 20231222
  Transmission Date: 20240110
  Serious: Yes (unspecified)
  Sender: FDA-Public Use
  Company Number: None

PATIENT
  Age: 44 Year
  Sex: Female
  Weight: 135 kg

DRUGS (1)
  1. INFLECTRA [Suspect]
     Active Substance: INFLIXIMAB-DYYB
     Indication: Hidradenitis
     Dosage: 1030 MG Q 8 WEEKS INTRAVENOUS DRIP?
     Route: 041
     Dates: start: 20230525, end: 20231221

REACTIONS (6)
  - Inflammation [None]
  - Pruritus [None]
  - Infusion related reaction [None]
  - Periorbital oedema [None]
  - Scleral oedema [None]
  - Uveitis [None]

NARRATIVE: CASE EVENT DATE: 20231221
